FAERS Safety Report 6977211-4 (Version None)
Quarter: 2010Q3

REPORT INFORMATION
  Report Type: 
  Country: None (occurrence: None)
  Receive Date: 20100910
  Receipt Date: 20100901
  Transmission Date: 20110219
  Serious: Yes (Hospitalization, Other)
  Sender: FDA-Public Use
  Company Number: US-NAPPMUNDI-USA-2010-0046359

PATIENT
  Sex: Female

DRUGS (1)
  1. OXYCODONE HCL [Suspect]
     Indication: PAIN
     Dosage: 80 MG, TID
     Dates: start: 20080101

REACTIONS (2)
  - DECUBITUS ULCER [None]
  - HYPERSENSITIVITY [None]
